FAERS Safety Report 6400461-2 (Version None)
Quarter: 2009Q4

REPORT INFORMATION
  Report Type: 
  Country: None (occurrence: None)
  Receive Date: 20091007
  Receipt Date: 20091007
  Transmission Date: 20100525
  Serious: No
  Sender: FDA-Public Use
  Company Number: None

PATIENT
  Sex: Male

DRUGS (2)
  1. PEGASYS [Suspect]
     Indication: HEPATITIS C
     Dosage: 180 MCG/0.5ML ONCE Q WEEK SQ
     Route: 058
     Dates: start: 20090901, end: 20091005
  2. RIBAVIRIN [Suspect]
     Indication: HEPATITIS C
     Dosage: 400 MG BID PO
     Route: 048
     Dates: start: 20090901, end: 20091005

REACTIONS (5)
  - ANXIETY [None]
  - CONFUSIONAL STATE [None]
  - NERVOUSNESS [None]
  - SPEECH DISORDER [None]
  - TREMOR [None]
